FAERS Safety Report 15305067 (Version 1)
Quarter: 2018Q3

REPORT INFORMATION
  Report Type: Spontaneous
  Country: US (occurrence: US)
  Receive Date: 20180810
  Receipt Date: 20180810
  Transmission Date: 20181010
  Serious: Yes (Disabling)
  Sender: FDA-Public Use
  Company Number: None

PATIENT
  Age: 22 Year
  Sex: Female
  Weight: 49.5 kg

DRUGS (3)
  1. NORETH/ETH EST(PIRMELLA) [Concomitant]
  2. HUMIRA [Suspect]
     Active Substance: ADALIMUMAB
     Indication: CROHN^S DISEASE
     Dosage: ?          QUANTITY:1 INJECTION(S);OTHER ROUTE:INJECTED INTO THIGH?
     Dates: start: 20171107, end: 20180521
  3. BETAMETHASONE DIP [Concomitant]

REACTIONS (4)
  - Alopecia [None]
  - Infection [None]
  - Psoriasis [None]
  - Wound [None]

NARRATIVE: CASE EVENT DATE: 20180515
